FAERS Safety Report 6156492-3 (Version None)
Quarter: 2009Q2

REPORT INFORMATION
  Report Type: 
  Country: None (occurrence: None)
  Receive Date: 20090413
  Receipt Date: 20081023
  Transmission Date: 20091009
  Serious: Yes (Other)
  Sender: FDA-Public Use
  Company Number: OPER20080212

PATIENT
  Sex: Female

DRUGS (1)
  1. OPANA ER [Suspect]
     Dosage: ONCE, PER ORAL
     Route: 048
     Dates: start: 20081022, end: 20081022

REACTIONS (2)
  - DYSPNOEA [None]
  - WHEEZING [None]
